FAERS Safety Report 10280148 (Version 2)
Quarter: 2014Q3

REPORT INFORMATION
  Report Type: Spontaneous
  Country: US (occurrence: None)
  Receive Date: 20140702
  Receipt Date: 20140710
  Transmission Date: 20150326
  Serious: Yes (Other)
  Sender: FDA-Public Use
  Company Number: 20140374

PATIENT

DRUGS (1)
  1. EPINEPHRINE INJECTION, USP (1071-25) 1 MG/ML [Suspect]
     Active Substance: EPINEPHRINE
     Indication: BURN OPERATION
     Dosage: (INFUSION PUMP)
     Route: 042

REACTIONS (4)
  - Acute pulmonary oedema [None]
  - Drug administration error [None]
  - Infusion site extravasation [None]
  - Vasoconstriction [None]
